FAERS Safety Report 10156638 (Version 5)
Quarter: 2014Q4

REPORT INFORMATION
  Report Type: Spontaneous
  Country: US (occurrence: None)
  Receive Date: 20140505
  Receipt Date: 20141216
  Transmission Date: 20150528
  Serious: Yes (Other)
  Sender: FDA-Public Use
  Company Number: 2014-US-004891

PATIENT
  Age: 40 Year
  Sex: Female
  Weight: 54.4 kg

DRUGS (19)
  1. ZETIA [Concomitant]
     Active Substance: EZETIMIBE
  2. LEXAPRO [Concomitant]
     Active Substance: ESCITALOPRAM OXALATE
  3. SYNTHROID [Concomitant]
     Active Substance: LEVOTHYROXINE SODIUM
  4. IMDUR [Concomitant]
     Active Substance: ISOSORBIDE MONONITRATE
  5. PROCARDIA [Concomitant]
     Active Substance: NIFEDIPINE
  6. CREON [Suspect]
     Active Substance: PANCRELIPASE AMYLASE\PANCRELIPASE LIPASE\PANCRELIPASE PROTEASE
  7. MULTIVITAMIN [Concomitant]
     Active Substance: VITAMINS
  8. NITROSTAT (GLYCERYL TRINITRATE) [Concomitant]
  9. LEVOTHYROXINE SODIUM  (LEVOTHYROXINE SODIUM) [Concomitant]
  10. XYREM [Suspect]
     Active Substance: SODIUM OXYBATE
     Indication: NARCOLEPSY
     Route: 048
     Dates: start: 201401, end: 2014
  11. NUVIGIL [Concomitant]
     Active Substance: ARMODAFINIL
  12. VITAMIN B3 [Concomitant]
     Active Substance: NIACIN
  13. XARELTO [Concomitant]
     Active Substance: RIVAROXABAN
  14. NEXIUM (OMEPRAZOLE  MAGNESIUM) [Concomitant]
  15. ATARAX [Concomitant]
     Active Substance: HYDROXYZINE\HYDROXYZINE HYDROCHLORIDE
  16. CALCIUM (CALCIUM GLUCONATE) [Concomitant]
  17. MULTIVITAMINS PLUS IRON (FERROUS SULFATE, VITAMINS NOS) [Concomitant]
  18. COLESTIPOL HYDRCHLORIDE (COLESTIPOL HYDORCHLORIDE) [Concomitant]
  19. TRIAZOLAM (TRIAZOLAM) [Concomitant]
     Active Substance: TRIAZOLAM

REACTIONS (6)
  - Cardiomyopathy [None]
  - Malnutrition [None]
  - Fall [None]
  - Bradycardia [None]
  - Cardiac failure [None]
  - Hand fracture [None]

NARRATIVE: CASE EVENT DATE: 20140415
